FAERS Safety Report 7090358-X (Version None)
Quarter: 2010Q4

REPORT INFORMATION
  Report Type: 
  Country: None (occurrence: None)
  Receive Date: 20101104
  Receipt Date: 20101104
  Transmission Date: 20110411
  Serious: No
  Sender: FDA-Public Use
  Company Number: None

PATIENT
  Age: 73 Year
  Sex: Male

DRUGS (12)
  1. REVLIMID [Suspect]
     Indication: MULTIPLE MYELOMA
     Dosage: 10MG QD 21D/28D ORALLY
     Route: 048
  2. REVLIMID [Concomitant]
  3. DECADRON [Concomitant]
  4. FENTANYL [Concomitant]
  5. VICODIN [Concomitant]
  6. AREDIA [Concomitant]
  7. QVAR 40 [Concomitant]
  8. PROAIR HFA [Concomitant]
  9. PRILOSEC [Concomitant]
  10. ELAVIL [Concomitant]
  11. VITAMIN D [Concomitant]
  12. ASPIRIN [Concomitant]

REACTIONS (1)
  - NEUTROPENIA [None]
